FAERS Safety Report 7945584-1 (Version None)
Quarter: 2011Q4

REPORT INFORMATION
  Report Type: 
  Country: None (occurrence: None)
  Receive Date: 20111122
  Receipt Date: 20111110
  Transmission Date: 20120403
  Serious: Yes (Other)
  Sender: FDA-Public Use
  Company Number: DSA_48203_2011

PATIENT
  Sex: Female

DRUGS (21)
  1. PAXIL [Suspect]
     Indication: DEPRESSION
     Dosage: DF
  2. PAXIL [Suspect]
     Indication: ANXIETY
     Dosage: DF
  3. ZOLOFT [Suspect]
     Indication: DEPRESSION
     Dosage: DF
  4. ZOLOFT [Suspect]
     Indication: ANXIETY
     Dosage: DF
  5. WELLBUTRIN [Suspect]
     Indication: DEPRESSION
     Dosage: DF
  6. WELLBUTRIN [Suspect]
     Indication: ANXIETY
     Dosage: DF
  7. NARDIL [Suspect]
     Indication: DEPRESSION
     Dosage: 30 MG BID
     Dates: start: 20101228
  8. NARDIL [Suspect]
     Indication: ANXIETY
     Dosage: 30 MG BID
     Dates: start: 20101228
  9. CYMBALTA [Suspect]
     Indication: ANXIETY
     Dosage: DF
  10. CYMBALTA [Suspect]
     Indication: DEPRESSION
     Dosage: DF
  11. ABILIFY [Suspect]
     Indication: ANXIETY
     Dosage: DF
  12. ABILIFY [Suspect]
     Indication: DEPRESSION
     Dosage: DF
  13. PROZAC [Suspect]
     Indication: ANXIETY
     Dosage: DF
  14. PROZAC [Suspect]
     Indication: DEPRESSION
     Dosage: DF
  15. REMERON [Suspect]
     Indication: DEPRESSION
     Dosage: DF
  16. REMERON [Suspect]
     Indication: ANXIETY
     Dosage: DF
  17. PRISTIQ [Suspect]
     Indication: ANXIETY
     Dosage: DF
  18. PRISTIQ [Suspect]
     Indication: DEPRESSION
     Dosage: DF
  19. PAMELOR [Suspect]
     Indication: ANXIETY
     Dosage: DF
  20. PAMELOR [Suspect]
     Indication: DEPRESSION
     Dosage: DF
  21. AMBIEN [Concomitant]

REACTIONS (3)
  - OEDEMA PERIPHERAL [None]
  - DRUG INEFFECTIVE [None]
  - THROMBOSIS [None]
